FAERS Safety Report 4602712-3 (Version None)
Quarter: 2005Q1

REPORT INFORMATION
  Report Type: 
  Country: None (occurrence: None)
  Receive Date: 20050307
  Receipt Date: 20050222
  Transmission Date: 20050727
  Serious: Yes (Hospitalization)
  Sender: FDA-Public Use
  Company Number: S05-USA-01031-01

PATIENT
  Age: 88 Year
  Sex: Male

DRUGS (4)
  1. NAMENDA [Suspect]
     Dates: end: 20050101
  2. EXELON [Suspect]
     Dosage: 6 MH BID PO
     Route: 048
  3. HALDOL [Concomitant]
  4. ATIVAN [Concomitant]

REACTIONS (5)
  - DRUG INTOLERANCE [None]
  - HEPATIC FUNCTION ABNORMAL [None]
  - JAUNDICE [None]
  - PALLOR [None]
  - PNEUMONIA [None]
